FAERS Safety Report 5424576-0 (Version None)
Quarter: 2007Q3

REPORT INFORMATION
  Report Type: 
  Country: None (occurrence: None)
  Receive Date: 20070822
  Receipt Date: 20070807
  Transmission Date: 20080115
  Serious: Yes (Hospitalization)
  Sender: FDA-Public Use
  Company Number: 2007001135

PATIENT
  Age: 67 Year
  Sex: Female

DRUGS (12)
  1. TARCEVA [Suspect]
     Indication: NON-SMALL CELL LUNG CANCER
     Dosage: 150 MG (QD), ORAL; 75 MG (QD),ORAL
     Route: 048
     Dates: start: 20070118, end: 20070207
  2. TARCEVA [Suspect]
     Indication: NON-SMALL CELL LUNG CANCER
     Dosage: 150 MG (QD), ORAL; 75 MG (QD),ORAL
     Route: 048
     Dates: start: 20070207, end: 20070705
  3. ASPIRIN [Concomitant]
  4. ALKA-SELTZER(ALKA--SELTZER) [Concomitant]
  5. TRIAMCINOLONE [Concomitant]
  6. MAMYX [Concomitant]
  7. CALMOSEPTINE [Concomitant]
  8. CLONIDINE [Concomitant]
  9. TOPROL-XL [Concomitant]
  10. LOTREL [Concomitant]
  11. HYDROCHLOROTHIAZIDE [Concomitant]
  12. VUSION [Concomitant]

REACTIONS (9)
  - CLOSTRIDIUM DIFFICILE COLITIS [None]
  - DIARRHOEA [None]
  - FAECES DISCOLOURED [None]
  - HAEMOGLOBIN DECREASED [None]
  - PAIN [None]
  - PYREXIA [None]
  - RASH [None]
  - SKIN EXFOLIATION [None]
  - SKIN ULCER [None]
